FAERS Safety Report 16264522 (Version 2)
Quarter: 2019Q2

REPORT INFORMATION
  Report Type: Report from Study
  Country: None (occurrence: CA)
  Receive Date: 20190502
  Receipt Date: 20190612
  Transmission Date: 20190711
  Serious: Yes (Hospitalization)
  Sender: FDA-Public Use
  Company Number: CA-ABBVIE-19K-028-2766068-00

PATIENT
  Sex: Male
  Weight: 115 kg

DRUGS (1)
  1. HUMIRA [Suspect]
     Active Substance: ADALIMUMAB
     Indication: HIDRADENITIS
     Route: 058
     Dates: start: 20190330

REACTIONS (6)
  - Discomfort [Not Recovered/Not Resolved]
  - Purulent discharge [Recovering/Resolving]
  - Pain [Not Recovered/Not Resolved]
  - Post procedural fever [Recovering/Resolving]
  - Scrotal swelling [Recovering/Resolving]
  - Hidradenitis [Unknown]

NARRATIVE: CASE EVENT DATE: 2019
